FAERS Safety Report 14104243 (Version 1)
Quarter: 2017Q4

REPORT INFORMATION
  Report Type: Spontaneous
  Country: US (occurrence: US)
  Receive Date: 20171018
  Receipt Date: 20171018
  Transmission Date: 20180321
  Serious: No
  Sender: FDA-Public Use
  Company Number: US-AMGEN-USASP2017110153

PATIENT
  Age: 85 Year
  Sex: Male

DRUGS (2)
  1. PROLIA [Suspect]
     Active Substance: DENOSUMAB
     Indication: BONE LOSS
     Dosage: 60 MG, UNK
     Route: 065
     Dates: start: 20161023
  2. ELIGARD [Suspect]
     Active Substance: LEUPROLIDE ACETATE
     Indication: PRODUCT USED FOR UNKNOWN INDICATION
     Dosage: UNK
     Route: 065

REACTIONS (5)
  - Erythema [Unknown]
  - Hot flush [Unknown]
  - Injection site mass [Not Recovered/Not Resolved]
  - Prostatic specific antigen increased [Unknown]
  - Skin reaction [Unknown]

NARRATIVE: CASE EVENT DATE: 201707
